FAERS Safety Report 12070630 (Version 2)
Quarter: 2016Q2

REPORT INFORMATION
  Report Type: Report from Study
  Country: CA (occurrence: CA)
  Receive Date: 20160211
  Receipt Date: 20160525
  Transmission Date: 20160815
  Serious: Yes (Death, Other)
  Sender: FDA-Public Use
  Company Number: CA-INCYTE CORPORATION-2012IN001595

PATIENT
  Age: 84 Year
  Sex: Male

DRUGS (3)
  1. JAKAFI [Suspect]
     Active Substance: RUXOLITINIB
     Indication: MYELOFIBROSIS
     Dosage: 20 MG, BID
     Route: 048
     Dates: start: 20120805
  2. JAKAFI [Suspect]
     Active Substance: RUXOLITINIB
     Dosage: 10 MG, BID
     Route: 048
  3. JAKAFI [Suspect]
     Active Substance: RUXOLITINIB
     Dosage: 5 MG, BID
     Route: 048

REACTIONS (13)
  - Hunger [Unknown]
  - Dry mouth [Unknown]
  - Constipation [Unknown]
  - Confusional state [Unknown]
  - Second primary malignancy [Unknown]
  - Death [Fatal]
  - Somnolence [Recovered/Resolved]
  - Contusion [Not Recovered/Not Resolved]
  - Bladder cancer stage II [Unknown]
  - Insomnia [Unknown]
  - Increased appetite [Unknown]
  - Memory impairment [Not Recovered/Not Resolved]
  - Headache [Recovered/Resolved]

NARRATIVE: CASE EVENT DATE: 201208
